FAERS Safety Report 24803386 (Version 1)
Quarter: 2025Q1

REPORT INFORMATION
  Report Type: Spontaneous
  Country: KR (occurrence: KR)
  Receive Date: 20250103
  Receipt Date: 20250103
  Transmission Date: 20250409
  Serious: No
  Sender: ALKEM
  Company Number: KR-ALKEM LABORATORIES LIMITED-KR-ALKEM-2023-15922

PATIENT
  Age: 65 Year
  Sex: Male

DRUGS (5)
  1. TACROLIMUS [Interacting]
     Active Substance: TACROLIMUS
     Indication: Immunosuppressant drug therapy
     Dosage: 4.5 MILLIGRAM, BID (TWICE A DAY)
     Route: 065
  2. TACROLIMUS [Interacting]
     Active Substance: TACROLIMUS
     Route: 065
  3. PAXLOVID [Interacting]
     Active Substance: NIRMATRELVIR\RITONAVIR
     Indication: COVID-19
     Route: 065
  4. MYCOPHENOLATE MOFETIL [Concomitant]
     Active Substance: MYCOPHENOLATE MOFETIL
     Indication: Immunosuppressant drug therapy
     Dosage: 360 MILLIGRAM, BID (TWICE A DAY)
     Route: 065
  5. PREDNISONE [Concomitant]
     Active Substance: PREDNISONE
     Indication: Immunosuppressant drug therapy
     Dosage: 5 MILLIGRAM, OD (ONCE A DAY)
     Route: 065

REACTIONS (5)
  - Toxicity to various agents [Unknown]
  - Drug level increased [Unknown]
  - Drug interaction [Unknown]
  - Neurotoxicity [Unknown]
  - Nephropathy toxic [Unknown]
